FAERS Safety Report 5170054-6 (Version None)
Quarter: 2006Q4

REPORT INFORMATION
  Report Type: 
  Country: None (occurrence: None)
  Receive Date: 20061212
  Receipt Date: 20061109
  Transmission Date: 20070319
  Serious: Yes (Hospitalization)
  Sender: FDA-Public Use
  Company Number: US-ELI_LILLY_AND_COMPANY-US200611002739

PATIENT
  Weight: 2.239 kg

DRUGS (3)
  1. HUMALOG [Suspect]
     Route: 064
  2. HUMULIN N [Suspect]
     Route: 064
  3. HUMULIN R [Suspect]
     Route: 064

REACTIONS (5)
  - CAESAREAN SECTION [None]
  - DRUG EXPOSURE DURING PREGNANCY [None]
  - DRUG EXPOSURE VIA BREAST MILK [None]
  - PREMATURE BABY [None]
  - SMALL FOR DATES BABY [None]
